FAERS Safety Report 9790027 (Version 1)
Quarter: 2013Q4

REPORT INFORMATION
  Report Type: Spontaneous
  Country: US (occurrence: US)
  Receive Date: 20131231
  Receipt Date: 20131231
  Transmission Date: 20140711
  Serious: No
  Sender: FDA-Public Use
  Company Number: US-009507513-1312USA003001

PATIENT
  Age: 77 Year
  Sex: Female

DRUGS (4)
  1. NASONEX [Suspect]
     Indication: EAR DISORDER
     Dosage: 2 SPRAYS IN EACH NOSTRIL AT BEDTIME
     Route: 045
     Dates: start: 20131130
  2. LIPITOR [Concomitant]
  3. SINGULAIR [Concomitant]
  4. FLONASE [Concomitant]

REACTIONS (1)
  - Insomnia [Not Recovered/Not Resolved]
